FAERS Safety Report 7004849-0 (Version None)
Quarter: 2010Q3

REPORT INFORMATION
  Report Type: 
  Country: None (occurrence: None)
  Receive Date: 20100921
  Receipt Date: 20100910
  Transmission Date: 20110219
  Serious: Yes (Death, Other)
  Sender: FDA-Public Use
  Company Number: SE-NOVOPROD-307057

PATIENT
  Age: 67 Year
  Sex: Male
  Weight: 63 kg

DRUGS (6)
  1. NOVONORM [Suspect]
     Indication: DIABETES MELLITUS
     Dosage: 0.5 MG, BID
     Dates: start: 20081013, end: 20100505
  2. PANTOLOC                           /01263201/ [Concomitant]
     Dosage: 40 MG, QD
     Route: 048
     Dates: start: 20100525
  3. CREON [Concomitant]
     Dosage: 10000 UNK, UNK
     Route: 048
     Dates: start: 20090703
  4. ZOLPIDEM TARTRATE [Concomitant]
     Dosage: 5 MG, QD
     Route: 048
     Dates: start: 20090616
  5. NEXIUM [Concomitant]
     Dosage: 20 MG, QD
     Route: 048
     Dates: start: 20100528
  6. OXYCODONE HCL [Concomitant]
     Indication: PAIN
     Dosage: 5 MG, QD
     Route: 048
     Dates: start: 20090703

REACTIONS (2)
  - DIABETES MELLITUS INADEQUATE CONTROL [None]
  - PANCREATIC CARCINOMA [None]
